FAERS Safety Report 17325214 (Version 7)
Quarter: 2023Q1

REPORT INFORMATION
  Report Type: Spontaneous
  Country: CA (occurrence: CA)
  Receive Date: 20200127
  Receipt Date: 20230110
  Transmission Date: 20230418
  Serious: Yes (Other)
  Sender: FDA-Public Use
  Company Number: CA-PFIZER INC-2018158707

PATIENT
  Age: 48 Year
  Sex: Female

DRUGS (10)
  1. SOMAVERT [Suspect]
     Active Substance: PEGVISOMANT
     Indication: Acromegaly
     Dosage: 10 MG, DAILY
     Route: 058
     Dates: start: 20130410, end: 2015
  2. SOMAVERT [Suspect]
     Active Substance: PEGVISOMANT
     Dosage: 15 MG, DAILY, DISCONTINUED 2018/2019
     Route: 058
     Dates: start: 2015
  3. SOMAVERT [Suspect]
     Active Substance: PEGVISOMANT
     Dosage: 15 MG, DAILY
     Route: 058
     Dates: start: 201504, end: 20180729
  4. SOMAVERT [Suspect]
     Active Substance: PEGVISOMANT
     Dosage: 20 MG, DAILY, STARTED 2018/2019
     Route: 058
     Dates: end: 201911
  5. SOMAVERT [Suspect]
     Active Substance: PEGVISOMANT
     Dosage: 25 MG, 1X/DAY
     Route: 058
  6. FLUVOXAMINE [Concomitant]
     Active Substance: FLUVOXAMINE
     Dosage: 10 MG, UNK
     Route: 065
  7. SANDOSTATIN [Concomitant]
     Active Substance: OCTREOTIDE ACETATE
     Indication: Acromegaly
     Dosage: 10 MG, CYCLIC (EVERY 4 WEEKS)
     Route: 065
     Dates: end: 201606
  8. SANDOSTATIN [Concomitant]
     Active Substance: OCTREOTIDE ACETATE
     Dosage: 10 MG, (EVERY 4 WEEKS) UNKNOWN STATUS
     Route: 065
  9. TRAZODONE [Concomitant]
     Active Substance: TRAZODONE HYDROCHLORIDE
     Dosage: 12.5 MG, DAILY
     Route: 065
  10. TRAZODONE [Concomitant]
     Active Substance: TRAZODONE HYDROCHLORIDE
     Dosage: 12.5 MG, 1X/DAY, 1 DF
     Route: 065

REACTIONS (15)
  - Road traffic accident [Unknown]
  - Concussion [Unknown]
  - Memory impairment [Unknown]
  - Obstructive sleep apnoea syndrome [Not Recovered/Not Resolved]
  - Therapeutic product effect decreased [Not Recovered/Not Resolved]
  - Product preparation issue [Unknown]
  - Product dose omission issue [Unknown]
  - Product use complaint [Unknown]
  - Product physical issue [Unknown]
  - Pain [Unknown]
  - Excessive cerumen production [Unknown]
  - Hypoacusis [Unknown]
  - Weight increased [Not Recovered/Not Resolved]
  - Limb injury [Unknown]
  - Illness [Not Recovered/Not Resolved]

NARRATIVE: CASE EVENT DATE: 20191201
